FAERS Safety Report 20062256 (Version 5)
Quarter: 2022Q3

REPORT INFORMATION
  Report Type: Spontaneous
  Country: JP (occurrence: JP)
  Receive Date: 20211112
  Receipt Date: 20220714
  Transmission Date: 20221027
  Serious: Yes (Hospitalization, Other)
  Sender: FDA-Public Use
  Company Number: JP-GSKNCCC-Case-01348423_AE-51516

PATIENT

DRUGS (7)
  1. TRELEGY ELLIPTA [Suspect]
     Active Substance: FLUTICASONE FUROATE\UMECLIDINIUM BROMIDE\VILANTEROL TRIFENATATE
     Indication: Chronic obstructive pulmonary disease
     Dosage: 100 ?G, QD, 1 INHALATION
     Route: 055
  2. PREDONINE [Concomitant]
     Active Substance: PREDNISOLONE
     Indication: Chronic obstructive pulmonary disease
     Dosage: 2.5 MG, QD, IN THE MORNING
     Route: 048
     Dates: start: 202105
  3. MONTELUKAST [Concomitant]
     Active Substance: MONTELUKAST SODIUM
     Dosage: 10 MG, QD, AFTER BREAKFAST
     Route: 048
  4. SAMSCA [Concomitant]
     Active Substance: TOLVAPTAN
     Indication: Cardiac failure chronic
     Dosage: 3.75 MG, QD, AFTER BREAKFAST
     Route: 048
     Dates: start: 202105
  5. AZOSEMIDE [Concomitant]
     Active Substance: AZOSEMIDE
     Indication: Cardiac failure chronic
     Dosage: 30 MG, QD, AFTER BREAKFAST
     Route: 048
  6. URAPIDIL [Concomitant]
     Active Substance: URAPIDIL
     Indication: Hypertonic bladder
     Dosage: 1 DF, QD, AFTER BREAKFAST
     Route: 048
  7. BEOVA [Concomitant]
     Indication: Hypertonic bladder
     Dosage: 1 DF, QD, AFTER BREAKFAST
     Route: 048

REACTIONS (3)
  - Lumbar vertebral fracture [Recovering/Resolving]
  - Fall [Recovered/Resolved]
  - Wrong technique in product usage process [Unknown]

NARRATIVE: CASE EVENT DATE: 20210910
